FAERS Safety Report 7112681-2 (Version None)
Quarter: 2010Q4

REPORT INFORMATION
  Report Type: 
  Country: None (occurrence: None)
  Receive Date: 20101119
  Receipt Date: 20101108
  Transmission Date: 20110411
  Serious: Yes (Hospitalization, Other)
  Sender: FDA-Public Use
  Company Number: PHHY2010BR76478

PATIENT
  Sex: Female

DRUGS (1)
  1. LESCOL [Suspect]
     Dosage: 80 ML

REACTIONS (2)
  - NEOPLASM MALIGNANT [None]
  - PULMONARY EMBOLISM [None]
